FAERS Safety Report 21176610 (Version 1)
Quarter: 2022Q3

REPORT INFORMATION
  Report Type: Spontaneous
  Country: US (occurrence: US)
  Receive Date: 20220805
  Receipt Date: 20220805
  Transmission Date: 20221026
  Serious: No
  Sender: FDA-Public Use
  Company Number: US-ALLERGAN-2216039US

PATIENT
  Age: 75 Year
  Sex: Female

DRUGS (2)
  1. VUITY [Suspect]
     Active Substance: PILOCARPINE HYDROCHLORIDE
     Indication: Presbyopia
     Dosage: 4 TIMES, IN THE MORNINGS
     Dates: start: 202204, end: 202204
  2. LATANOPROST [Concomitant]
     Active Substance: LATANOPROST
     Indication: Glaucoma
     Dosage: 2 GTT, QPM

REACTIONS (5)
  - Ocular hyperaemia [Recovered/Resolved]
  - Eye pruritus [Recovered/Resolved]
  - Conjunctival irritation [Recovered/Resolved]
  - Eye pain [Recovered/Resolved]
  - Drug ineffective [Unknown]
